FAERS Safety Report 21330478 (Version 1)
Quarter: 2022Q3

REPORT INFORMATION
  Report Type: Spontaneous
  Country: US (occurrence: US)
  Receive Date: 20220913
  Receipt Date: 20220913
  Transmission Date: 20221026
  Serious: Yes (Other)
  Sender: FDA-Public Use
  Company Number: US-PFIZER INC-202201156458

PATIENT
  Age: 45 Year
  Sex: Male
  Weight: 87.54 kg

DRUGS (4)
  1. RAPAMUNE [Suspect]
     Active Substance: SIROLIMUS
     Indication: Pancreas transplant
     Dosage: 2 MG, DAILY
     Route: 048
     Dates: start: 2009
  2. RAPAMUNE [Suspect]
     Active Substance: SIROLIMUS
     Indication: Renal transplant
  3. SIROLIMUS [Suspect]
     Active Substance: SIROLIMUS
     Indication: Pancreas transplant
     Dosage: 1 MG, 1X/DAY
     Route: 048
  4. SIROLIMUS [Suspect]
     Active Substance: SIROLIMUS
     Indication: Renal transplant

REACTIONS (2)
  - Myocardial infarction [Recovering/Resolving]
  - Coronary artery bypass [Recovering/Resolving]

NARRATIVE: CASE EVENT DATE: 20220822
